FAERS Safety Report 15480418 (Version 1)
Quarter: 2018Q4

REPORT INFORMATION
  Report Type: Spontaneous
  Country: CN (occurrence: CN)
  Receive Date: 20181009
  Receipt Date: 20181009
  Transmission Date: 20190205
  Serious: Yes (Other)
  Sender: FDA-Public Use
  Company Number: CN-BAXTER-2018BAX025047

PATIENT
  Age: 38 Year
  Sex: Female
  Weight: 65 kg

DRUGS (4)
  1. 0.9% SODIUM CHLORIDE INJECTION [Suspect]
     Active Substance: SODIUM CHLORIDE
     Dosage: DOCETAXEL INJECTION100MG PER TIME QD + 0.9%SODIUM CHLORIDE INJECTION 250 ML
     Route: 041
     Dates: start: 20180731, end: 20180731
  2. ENDOXAN [Suspect]
     Active Substance: CYCLOPHOSPHAMIDE
     Indication: BREAST CANCER
     Dosage: DOSAGE FORM: POWDER-INJECTION, CYCLOPHOSPHAMIDE FOR INJECTION 0.6 G PER TIME QD + 0.9% SODIUM CHLORI
     Route: 041
     Dates: start: 20180731, end: 20180731
  3. 0.9% SODIUM CHLORIDE INJECTION [Suspect]
     Active Substance: SODIUM CHLORIDE
     Indication: MEDICATION DILUTION
     Dosage: CYCLOPHOSPHAMIDE FOR INJECTION 0.6 G PER TIME QD + 0.9% SODIUM CHLORIDE INJECTION100 ML
     Route: 041
     Dates: start: 20180731, end: 20180731
  4. DOCETAXEL. [Suspect]
     Active Substance: DOCETAXEL
     Indication: BREAST CANCER
     Dosage: DOCETAXEL INJECTION100MG PER TIME QD + 0.9%SODIUM CHLORIDE INJECTION 250 ML
     Route: 041
     Dates: start: 20180731, end: 20180731

REACTIONS (1)
  - Bone marrow failure [Recovering/Resolving]

NARRATIVE: CASE EVENT DATE: 20180812
